FAERS Safety Report 17872663 (Version 4)
Quarter: 2020Q3

REPORT INFORMATION
  Report Type: Report from Study
  Country: CN (occurrence: CN)
  Receive Date: 20200608
  Receipt Date: 20200924
  Transmission Date: 20201103
  Serious: Yes (Hospitalization, Other)
  Sender: FDA-Public Use
  Company Number: NVSC2020CN158383

PATIENT
  Age: 79 Year
  Sex: Male
  Weight: 57 kg

DRUGS (32)
  1. ATORVASTATIN CALCIUM. [Concomitant]
     Active Substance: ATORVASTATIN CALCIUM
     Indication: ARTERIOSCLEROSIS
     Dosage: 20 MG
     Route: 065
     Dates: start: 20200713, end: 20200730
  2. RIVAROXABAN [Concomitant]
     Active Substance: RIVAROXABAN
     Dosage: 20 MG
     Route: 065
     Dates: start: 20200713, end: 20200730
  3. RIVAROXABAN [Concomitant]
     Active Substance: RIVAROXABAN
     Dosage: 20 MG
     Route: 065
     Dates: start: 20200802, end: 20200810
  4. DIGOXIN. [Concomitant]
     Active Substance: DIGOXIN
     Dosage: 0.125 MG
     Route: 065
     Dates: start: 20200802, end: 20200807
  5. SPIRONOLACTONE. [Concomitant]
     Active Substance: SPIRONOLACTONE
     Indication: CARDIAC FAILURE CHRONIC
     Dosage: 20 MG, QD
     Route: 065
  6. AMLODIPINE [Concomitant]
     Active Substance: AMLODIPINE BESYLATE
     Indication: ASTHMA
     Dosage: 0.2 G
     Route: 065
     Dates: start: 20200802, end: 20200807
  7. TORASEMIDE [Concomitant]
     Active Substance: TORSEMIDE
     Indication: DIURETIC THERAPY
     Dosage: 20 MG
     Route: 065
     Dates: start: 20200601, end: 20200602
  8. RIVAROXABAN [Concomitant]
     Active Substance: RIVAROXABAN
     Indication: ANTICOAGULANT THERAPY
     Dosage: 15 MG
     Route: 065
     Dates: start: 20200601
  9. TORASEMIDE [Concomitant]
     Active Substance: TORSEMIDE
     Dosage: 20 MG
     Route: 065
     Dates: start: 20200604, end: 20200605
  10. ATORVASTATIN CALCIUM. [Concomitant]
     Active Substance: ATORVASTATIN CALCIUM
     Dosage: 20 MG
     Route: 065
     Dates: start: 20200802, end: 20200807
  11. METOPROLOL. [Concomitant]
     Active Substance: METOPROLOL
     Indication: OXYGEN CONSUMPTION
     Dosage: 23.75 MG
     Route: 065
     Dates: start: 20200601
  12. MONTELUKAST SODIUM. [Concomitant]
     Active Substance: MONTELUKAST SODIUM
     Indication: ASTHMA
     Dosage: 10 MG
     Route: 065
     Dates: start: 20200602
  13. MONTELUKAST SODIUM. [Concomitant]
     Active Substance: MONTELUKAST SODIUM
     Dosage: 10 MG
     Route: 065
     Dates: start: 20200802, end: 20200807
  14. FUROSEMIDE. [Concomitant]
     Active Substance: FUROSEMIDE
     Indication: DIURETIC THERAPY
     Dosage: 20 MG
     Route: 065
     Dates: start: 20200730, end: 20200730
  15. ENTRESTO [Suspect]
     Active Substance: SACUBITRIL\VALSARTAN
     Dosage: 25 MG, BID
     Route: 048
     Dates: start: 20200601
  16. METHOXYPHENAMINE [Concomitant]
     Active Substance: METHOXYPHENAMINE
     Indication: ASTHMA
     Dosage: 2 DF (2 PILLS)
     Route: 065
     Dates: start: 20200605
  17. CREATINE PHOSPHATE SODIUM [Concomitant]
     Active Substance: CREATINE
     Dosage: 1 G
     Route: 065
     Dates: start: 20200604, end: 20200604
  18. CREATINE PHOSPHATE SODIUM [Concomitant]
     Active Substance: CREATINE
     Dosage: 1 G
     Route: 065
     Dates: start: 20200718, end: 20200729
  19. AMBROXOL [Concomitant]
     Active Substance: AMBROXOL
     Indication: PRODUCTIVE COUGH
     Dosage: 60 MG
     Route: 065
     Dates: start: 20200602
  20. BUDESONIDE. [Concomitant]
     Active Substance: BUDESONIDE
     Indication: ASTHMA
     Dosage: 1 MG (SUSPENSION FOR INHALATION)
     Route: 065
     Dates: start: 20200602, end: 20200610
  21. DIGOXIN. [Concomitant]
     Active Substance: DIGOXIN
     Indication: CARDIAC FAILURE
     Dosage: 0.125 MG, QD
     Route: 065
     Dates: start: 20200602
  22. AMINOPHYLLINE. [Concomitant]
     Active Substance: AMINOPHYLLINE
     Indication: ASTHMA
     Dosage: 0.2 G
     Route: 065
     Dates: start: 20200602
  23. LEVOFLOXACIN HYDROCHLORIDE AND SODIUM CHLORID [Concomitant]
     Indication: INFLAMMATION
     Dosage: 100 ML
     Route: 065
     Dates: start: 20200605, end: 20200611
  24. CELECOXIB. [Concomitant]
     Active Substance: CELECOXIB
     Indication: INFLAMMATION
     Dosage: 0.2 G
     Route: 065
     Dates: start: 20200605, end: 20200610
  25. ENTRESTO [Suspect]
     Active Substance: SACUBITRIL\VALSARTAN
     Indication: CARDIAC FAILURE CHRONIC
     Dosage: 25 MG, BID
     Route: 048
     Dates: start: 20200421, end: 20200528
  26. TORASEMIDE [Concomitant]
     Active Substance: TORSEMIDE
     Dosage: 20 MG
     Route: 065
     Dates: start: 20200802, end: 20200803
  27. ATORVASTATIN CALCIUM. [Concomitant]
     Active Substance: ATORVASTATIN CALCIUM
     Indication: DYSLIPIDAEMIA
     Dosage: 20 MG
     Route: 065
     Dates: start: 20200601
  28. CREATINE PHOSPHATE SODIUM [Concomitant]
     Active Substance: CREATINE
     Indication: NUTRITIONAL SUPPLEMENTATION
     Dosage: 1 G
     Route: 065
     Dates: start: 20200601, end: 20200602
  29. DIGOXIN. [Concomitant]
     Active Substance: DIGOXIN
     Dosage: 0.125 MG
     Route: 065
     Dates: start: 20200714, end: 20200730
  30. IPRATROPIUM BROMIDE. [Concomitant]
     Active Substance: IPRATROPIUM BROMIDE
     Indication: ASTHMA
     Dosage: 500 UG
     Route: 065
     Dates: start: 20200602, end: 20200610
  31. FUROSEMIDE. [Concomitant]
     Active Substance: FUROSEMIDE
     Indication: CARDIAC FAILURE CHRONIC
     Dosage: 20 MG, BID
     Route: 065
     Dates: start: 20200601
  32. SODIUM RABEPRAZOLE [Concomitant]
     Active Substance: RABEPRAZOLE SODIUM
     Indication: GASTROINTESTINAL DISORDER PROPHYLAXIS
     Dosage: 20 MG
     Route: 065
     Dates: start: 20200605

REACTIONS (27)
  - Alanine aminotransferase decreased [Recovering/Resolving]
  - Pulmonary artery dilatation [Not Recovered/Not Resolved]
  - Cerebrovascular insufficiency [Recovering/Resolving]
  - Cough [Recovering/Resolving]
  - Pleural effusion [Unknown]
  - Spinal column injury [Not Recovered/Not Resolved]
  - Blood creatinine increased [Not Recovered/Not Resolved]
  - Arrhythmia [Recovering/Resolving]
  - Pulmonary fibrosis [Unknown]
  - Clavicle fracture [Not Recovered/Not Resolved]
  - Blood pressure decreased [Recovering/Resolving]
  - Wheezing [Recovering/Resolving]
  - Bronchial disorder [Recovering/Resolving]
  - Asthenia [Recovering/Resolving]
  - Chronic obstructive pulmonary disease [Recovering/Resolving]
  - N-terminal prohormone brain natriuretic peptide increased [Recovering/Resolving]
  - Pneumonitis [Recovering/Resolving]
  - Pleural adhesion [Unknown]
  - Pleural thickening [Unknown]
  - Cardiac failure acute [Recovering/Resolving]
  - Cardiac failure [Recovering/Resolving]
  - Rib fracture [Not Recovered/Not Resolved]
  - Aortic arteriosclerosis [Not Recovered/Not Resolved]
  - Blood albumin increased [Recovering/Resolving]
  - Chest discomfort [Recovering/Resolving]
  - Oedema peripheral [Recovering/Resolving]
  - Cerebral infarction [Unknown]

NARRATIVE: CASE EVENT DATE: 20200513
